FAERS Safety Report 5648641-8 (Version None)
Quarter: 2008Q1

REPORT INFORMATION
  Report Type: 
  Country: None (occurrence: None)
  Receive Date: 20080304
  Receipt Date: 20080220
  Transmission Date: 20080703
  Serious: Yes (Death, Hospitalization)
  Sender: FDA-Public Use
  Company Number: A0699229A

PATIENT
  Age: 18 Year
  Sex: Male

DRUGS (5)
  1. ADVAIR DISKUS 100/50 [Suspect]
     Indication: ASTHMA
     Route: 055
     Dates: end: 20021016
  2. SEREVENT [Suspect]
     Indication: ASTHMA
     Route: 055
     Dates: end: 20021016
  3. FLOVENT [Concomitant]
     Route: 055
  4. PREDNISONE TAB [Concomitant]
  5. ALBUTEROL [Concomitant]

REACTIONS (8)
  - ANOXIC ENCEPHALOPATHY [None]
  - ASTHMA [None]
  - BLOOD GLUCOSE INCREASED [None]
  - BRONCHITIS [None]
  - DYSPNOEA [None]
  - LUNG HYPERINFLATION [None]
  - RESPIRATORY ARREST [None]
  - STATUS ASTHMATICUS [None]
